FAERS Safety Report 21196072 (Version 2)
Quarter: 2022Q3

REPORT INFORMATION
  Report Type: Spontaneous
  Country: US (occurrence: US)
  Receive Date: 20220810
  Receipt Date: 20220923
  Transmission Date: 20221027
  Serious: No
  Sender: FDA-Public Use
  Company Number: US-PFIZER INC-202201049313

PATIENT
  Age: 69 Year
  Sex: Female

DRUGS (17)
  1. PAXLOVID [Suspect]
     Active Substance: NIRMATRELVIR\RITONAVIR
     Indication: COVID-19 treatment
     Dosage: = [PF-07321332 300 MG]/[RITONAVIR 100 MG]; 2X/DAY
     Route: 048
     Dates: start: 20220726, end: 20220730
  2. FAMOTIDINE [Concomitant]
     Active Substance: FAMOTIDINE
     Indication: Gastrointestinal disorder
     Dosage: 20 MG, 2X/DAY (IF NEEDED FOR STOMACH)
     Route: 048
  3. CETIRIZINE [Concomitant]
     Active Substance: CETIRIZINE HYDROCHLORIDE
     Indication: Hypersensitivity
     Dosage: 10 MG, 1X/DAY (QTY: 90 FOR 90 DAYS SIG: TAKE ONE (1) TABLET BY MOUTH EVERY NIGHT AT BEDTIME FOR ,ALL
     Route: 048
  4. CITALOPRAM [Concomitant]
     Active Substance: CITALOPRAM HYDROBROMIDE
     Dosage: UNK
  5. ALBUTEROL SULFATE [Concomitant]
     Active Substance: ALBUTEROL SULFATE
     Indication: Hypersensitivity
     Dosage: INHALE TWO (2) PUFFS BY MOUTH EVERY 4 HOURS IF NEEDED
     Route: 048
  6. ALBUTEROL SULFATE [Concomitant]
     Active Substance: ALBUTEROL SULFATE
     Indication: Dyspnoea
  7. CHOLECALCIFEROL [Concomitant]
     Active Substance: CHOLECALCIFEROL
     Indication: Vitamin D
     Dosage: TAKE TWO (2) TABLETS EVERY DAY
     Route: 048
  8. CALCITRATE PLUS D [Concomitant]
     Dosage: 1 DF, 2X/DAY
     Route: 048
  9. FLUTICASONE [Concomitant]
     Active Substance: FLUTICASONE
     Indication: Hypersensitivity
     Dosage: INSTILL 2 SPRAYS IN EACH NOSTRIL EVERY DAY
  10. METHOCARBAMOL [Concomitant]
     Active Substance: METHOCARBAMOL
     Indication: Hypotonia
     Dosage: 750 MG, 3X/DAY
     Route: 048
  11. TRAZODONE [Concomitant]
     Active Substance: TRAZODONE HYDROCHLORIDE
     Dosage: UNK
  12. FLUOXETINE [Concomitant]
     Active Substance: FLUOXETINE HYDROCHLORIDE
     Indication: Alcohol problem
     Dosage: 10 MG, DAILY (TAKE ONE (1) CAPSULE BY MOUTH EVERY DAY AVOID ALCOHOL )
     Route: 048
  13. GUAIFENESIN [Concomitant]
     Active Substance: GUAIFENESIN
     Indication: Secretion discharge
     Dosage: 600 MG, AS NEEDED  (TAKE ONE (1) TABLET BY MOUTH EVERY 12 HOURS)
     Route: 048
  14. CARBOXYMETHYLCELLULOSE [Concomitant]
     Active Substance: CARBOXYMETHYLCELLULOSE
     Indication: Dry eye
     Dosage: 0.5 % (INSTILL 1 DROP IN AFFECTED EYE(S) EVERY 1 TO 2 HOURS FOR DRY EYES)
     Route: 047
  15. NAPROXEN [Concomitant]
     Active Substance: NAPROXEN
     Indication: Pain
     Dosage: 500 MG, 2X/DAY
     Route: 048
  16. NAPROXEN [Concomitant]
     Active Substance: NAPROXEN
     Indication: Inflammation
  17. TRIAMCINOLONE [Concomitant]
     Active Substance: TRIAMCINOLONE
     Indication: Rash
     Dosage: UNK UNK, CYCLIC (TWICE A DAY/ USE NO LONGER THAN 2 WEEKS, HOLD FOR 1 WEEK BEFORE RESUMING)

REACTIONS (2)
  - COVID-19 [Recovered/Resolved]
  - Disease recurrence [Recovered/Resolved]

NARRATIVE: CASE EVENT DATE: 20220807
